FAERS Safety Report 4596811-2 (Version None)
Quarter: 2005Q1

REPORT INFORMATION
  Report Type: 
  Country: None (occurrence: None)
  Receive Date: 20050228
  Receipt Date: 20050214
  Transmission Date: 20050727
  Serious: Yes (Other)
  Sender: FDA-Public Use
  Company Number: 2005034154

PATIENT
  Age: 75 Year
  Sex: Female

DRUGS (6)
  1. NORVASC [Suspect]
     Indication: HYPERTENSION
     Dosage: 5 MG (5 MG, 1 IN 1 D), ORAL
     Route: 048
  2. LISINOPRIL [Concomitant]
  3. CANDESARTAN CILEXETIL (CANDESARTAN CILEXETIL) [Concomitant]
  4. CALCITRIOL [Concomitant]
  5. LAFUTIDINE (LAFUTIDINE) [Concomitant]
  6. UBIDECARENONE (UBIDECARENONE) [Concomitant]

REACTIONS (1)
  - VITAL CAPACITY DECREASED [None]
